FAERS Safety Report 5308279-9 (Version None)
Quarter: 2007Q2

REPORT INFORMATION
  Report Type: 
  Country: None (occurrence: None)
  Receive Date: 20070423
  Receipt Date: 20070412
  Transmission Date: 20071010
  Serious: Yes (Hospitalization, Other)
  Sender: FDA-Public Use
  Company Number: 2007SP004688

PATIENT
  Age: 64 Year
  Sex: Female
  Weight: 56.6996 kg

DRUGS (4)
  1. INTRON A [Suspect]
     Indication: MALIGNANT MELANOMA
     Dosage: 15 MIU; TOW;  10 ,IU; TIW; SC
  2. TRILEPTAL [Suspect]
     Indication: CONVULSION
     Dosage: 150 MG; TID; PO
     Route: 048
     Dates: start: 20070109, end: 20070203
  3. BENICAR HCT (CON.) [Concomitant]
  4. LIPITOR (CON.) [Concomitant]

REACTIONS (5)
  - CLAVICLE FRACTURE [None]
  - CONVULSION [None]
  - DIARRHOEA [None]
  - FALL [None]
  - HYPONATRAEMIA [None]
